FAERS Safety Report 5898527-9 (Version None)
Quarter: 2008Q3

REPORT INFORMATION
  Report Type: 
  Country: None (occurrence: None)
  Receive Date: 20080925
  Receipt Date: 20071224
  Transmission Date: 20090109
  Serious: No
  Sender: FDA-Public Use
  Company Number: A0701063A

PATIENT
  Age: 74 Year
  Sex: Female

DRUGS (1)
  1. WELLBUTRIN XL [Suspect]
     Indication: DEPRESSION
     Dosage: 150MG AT NIGHT
     Route: 048

REACTIONS (2)
  - INSOMNIA [None]
  - NAUSEA [None]
